FAERS Safety Report 9324502 (Version 1)
Quarter: 2013Q2

REPORT INFORMATION
  Report Type: Spontaneous
  Country: US (occurrence: None)
  Receive Date: 20130531
  Receipt Date: 20130531
  Transmission Date: 20140414
  Serious: Yes (Disabling, Other)
  Sender: FDA-Public Use
  Company Number: None

PATIENT
  Age: 58 Year
  Sex: Female
  Weight: 88.91 kg

DRUGS (1)
  1. AMLODIPINE BESYLATE [Suspect]
     Indication: HYPERTENSION
     Dosage: 1 EVERYDAY
     Dates: start: 20130409, end: 20130508

REACTIONS (5)
  - Alopecia [None]
  - Skin odour abnormal [None]
  - Abdominal pain upper [None]
  - Burning sensation [None]
  - Product odour abnormal [None]
